FAERS Safety Report 9602246 (Version 2)
Quarter: 2013Q4

REPORT INFORMATION
  Report Type: Spontaneous
  Country: JP (occurrence: None)
  Receive Date: 20131003
  Receipt Date: 20131016
  Transmission Date: 20140711
  Serious: Yes (Hospitalization)
  Sender: FDA-Public Use
  Company Number: JP-013122

PATIENT
  Age: 86 Year
  Sex: Male
  Weight: 50 kg

DRUGS (14)
  1. GONAX [Suspect]
     Indication: PROSTATE CANCER
     Route: 058
     Dates: start: 20130913
  2. DEPAS [Concomitant]
  3. MAGNESIUM OXIDE [Concomitant]
  4. PANTOSIN [Concomitant]
  5. PURSENNID [Concomitant]
  6. DAIKENCHUUTOU [Concomitant]
  7. NORVASC [Concomitant]
  8. TAKEPRON [Concomitant]
  9. URSO [Concomitant]
  10. PRIMPERAN [Concomitant]
  11. LAXOBERON [Concomitant]
  12. FENTOS [Concomitant]
  13. OXINORM [Concomitant]
  14. DECADRON [Concomitant]

REACTIONS (4)
  - Injection site vesicles [None]
  - Injection site inflammation [None]
  - Injection site cellulitis [None]
  - Injection site atrophy [None]
